FAERS Safety Report 20382696 (Version 6)
Quarter: 2023Q2

REPORT INFORMATION
  Report Type: Spontaneous
  Country: US (occurrence: US)
  Receive Date: 20220127
  Receipt Date: 20230614
  Transmission Date: 20230722
  Serious: Yes (Other)
  Sender: FDA-Public Use
  Company Number: US-PFIZER INC-202200114104

PATIENT
  Age: 66 Year
  Sex: Male

DRUGS (14)
  1. INLYTA [Suspect]
     Active Substance: AXITINIB
     Dosage: 5 MG, 2X/DAY, STOPPED, OFF FOR 3 WEEKS
     Route: 048
     Dates: start: 20211203, end: 20211203
  2. INLYTA [Suspect]
     Active Substance: AXITINIB
     Dosage: 1 MG, 2X/DAY
     Dates: start: 20211203
  3. INLYTA [Suspect]
     Active Substance: AXITINIB
     Dosage: 3 MG, 2X/DAY
     Dates: start: 20220107, end: 2022
  4. INLYTA [Suspect]
     Active Substance: AXITINIB
     Dosage: 2 MG, 2X/DAY
     Dates: start: 20211203
  5. INLYTA [Suspect]
     Active Substance: AXITINIB
     Dosage: 4 MG, CYCLIC (ONCE DAILY FOR 14 DAYS ON FOLLOWED BY 14 DAYS OFF)
     Route: 048
     Dates: start: 202111, end: 202305
  6. KEYTRUDA [Concomitant]
     Active Substance: PEMBROLIZUMAB
     Dosage: UNK
  7. AMLODIPINE BESYLATE [Concomitant]
     Active Substance: AMLODIPINE BESYLATE
     Dosage: UNK
  8. ECHINACEA [Concomitant]
     Active Substance: ECHINACEA, UNSPECIFIED
     Dosage: UNK
  9. LORATADINE [Concomitant]
     Active Substance: LORATADINE
     Dosage: UNK
  10. TYLENOL [Concomitant]
     Active Substance: ACETAMINOPHEN
     Dosage: UNK
  11. ELIQUIS [Concomitant]
     Active Substance: APIXABAN
     Dosage: UNK
  12. LOPERAMIDE HYDROCHLORIDE [Concomitant]
     Active Substance: LOPERAMIDE HYDROCHLORIDE
     Dosage: UNK
  13. ACETAMINOPHEN [Concomitant]
     Active Substance: ACETAMINOPHEN
     Dosage: UNK
  14. CLARITIN [Concomitant]
     Active Substance: LORATADINE
     Dosage: UNK

REACTIONS (40)
  - Diarrhoea [Recovering/Resolving]
  - Weight decreased [Recovering/Resolving]
  - Nausea [Unknown]
  - Eye pain [Recovering/Resolving]
  - Muscular weakness [Recovering/Resolving]
  - Apathy [Recovering/Resolving]
  - Somnolence [Recovering/Resolving]
  - Chills [Recovering/Resolving]
  - Feeling cold [Recovering/Resolving]
  - Temperature regulation disorder [Recovering/Resolving]
  - Dry skin [Recovering/Resolving]
  - Musculoskeletal pain [Recovering/Resolving]
  - Blood pressure increased [Recovering/Resolving]
  - Glossodynia [Not Recovered/Not Resolved]
  - Gingival pain [Recovering/Resolving]
  - Decreased appetite [Recovering/Resolving]
  - Dysphonia [Recovering/Resolving]
  - Arthritis [Recovering/Resolving]
  - Muscle spasms [Recovering/Resolving]
  - Blood test abnormal [Recovering/Resolving]
  - Pruritus [Recovering/Resolving]
  - Dry mouth [Not Recovered/Not Resolved]
  - Dyspepsia [Recovering/Resolving]
  - Tremor [Not Recovered/Not Resolved]
  - Flatulence [Not Recovered/Not Resolved]
  - Eating disorder [Unknown]
  - Tongue discomfort [Unknown]
  - Constipation [Unknown]
  - Abdominal distension [Unknown]
  - Fatigue [Recovering/Resolving]
  - Vomiting [Unknown]
  - Dyspnoea [Unknown]
  - Swollen tongue [Recovering/Resolving]
  - Pain in extremity [Unknown]
  - Dysarthria [Recovering/Resolving]
  - Listless [Recovering/Resolving]
  - Quality of life decreased [Recovering/Resolving]
  - Oral discomfort [Recovering/Resolving]
  - Oral pain [Recovering/Resolving]
  - Off label use [Unknown]

NARRATIVE: CASE EVENT DATE: 20211101
